FAERS Safety Report 9248552 (Version 1)
Quarter: 2013Q1

REPORT INFORMATION
  Report Type: Spontaneous
  Country: US (occurrence: None)
  Receive Date: 20130305
  Receipt Date: 20130305
  Transmission Date: 20140127
  Serious: Yes (Other)
  Sender: FDA-Public Use
  Company Number: 163-21880-12092753

PATIENT
  Age: 57 Year
  Sex: Female

DRUGS (10)
  1. REVLIMID [Suspect]
     Indication: PLASMA CELL MYELOMA
     Dosage: 28 IN 28 D.
     Route: 048
     Dates: start: 20120105
  2. PROMETRIUM (PROGESTERONE) [Concomitant]
  3. ZOMETA (ZOLEDRONIC ACID) [Concomitant]
  4. ARMOUR THYROID (THYROID) [Concomitant]
  5. MAGNESIUIM (MAGNESIIUM) [Concomitant]
  6. CALCIUM-VITAMIN D (CALCIUM WITH VITAMIN D) [Concomitant]
  7. VITAMIN B COMPLEX (B-KOMPLEX ^LECIVA^) [Concomitant]
  8. VITAMIN C [Concomitant]
  9. VITAMIN E (TOCOPHEROL) [Concomitant]
  10. EVAMIST (ESTRADIOL) [Concomitant]

REACTIONS (2)
  - Nasopharyngitis [None]
  - Fungal infection [None]
